FAERS Safety Report 16491400 (Version 1)
Quarter: 2019Q2

REPORT INFORMATION
  Report Type: Spontaneous
  Country: GB (occurrence: GB)
  Receive Date: 20190628
  Receipt Date: 20190628
  Transmission Date: 20190711
  Serious: Yes (Other)
  Sender: FDA-Public Use
  Company Number: GB-TEVA-2019-GB-1070194

PATIENT
  Age: 33 Year
  Sex: Female

DRUGS (1)
  1. CIPROFLOXACIN. [Suspect]
     Active Substance: CIPROFLOXACIN
     Indication: URINARY TRACT INFECTION BACTERIAL
     Dosage: 1000 MILLIGRAM DAILY;
     Route: 048
     Dates: start: 20190522, end: 20190525

REACTIONS (1)
  - Tendon pain [Unknown]

NARRATIVE: CASE EVENT DATE: 20190522
